FAERS Safety Report 5076636-4 (Version None)
Quarter: 2006Q3

REPORT INFORMATION
  Report Type: 
  Country: None (occurrence: None)
  Receive Date: 20060810
  Receipt Date: 20060801
  Transmission Date: 20061208
  Serious: Yes (Hospitalization)
  Sender: FDA-Public Use
  Company Number: DK-JNJFOC-20060700947

PATIENT
  Age: 74 Year
  Sex: Female
  Weight: 65 kg

DRUGS (5)
  1. REMICADE [Suspect]
     Indication: RHEUMATOID ARTHRITIS
     Dosage: 3MG/KG
     Route: 042
  2. MAREVAN [Concomitant]
     Indication: ATRIAL FIBRILLATION
     Route: 065
  3. PREDNISOLONE [Concomitant]
     Indication: ARTHRITIS
     Route: 065
  4. IMUREL [Concomitant]
     Indication: ARTHRITIS
     Route: 065
  5. SALAZOPYRIN [Concomitant]
     Indication: ARTHRITIS
     Route: 065

REACTIONS (1)
  - TUBERCULOSIS [None]
